FAERS Safety Report 5717650-2 (Version None)
Quarter: 2008Q2

REPORT INFORMATION
  Report Type: 
  Country: None (occurrence: None)
  Receive Date: 20080425
  Receipt Date: 20080416
  Transmission Date: 20081010
  Serious: Yes (Other)
  Sender: FDA-Public Use
  Company Number: US-ROCHE-557356

PATIENT
  Sex: Female
  Weight: 46.3 kg

DRUGS (1)
  1. BONIVA [Suspect]
     Indication: OSTEOPOROSIS
     Dosage: TOOK TOTAL OF 7 DOSES
     Route: 042
     Dates: start: 20060414, end: 20071103

REACTIONS (1)
  - OSTEONECROSIS [None]
